FAERS Safety Report 9154860 (Version 2)
Quarter: 2013Q1

REPORT INFORMATION
  Report Type: Spontaneous
  Country: US (occurrence: US)
  Receive Date: 20130311
  Receipt Date: 20130315
  Transmission Date: 20140127
  Serious: No
  Sender: FDA-Public Use
  Company Number: US-PFIZER INC-2013080543

PATIENT
  Age: 63 Year
  Sex: Female
  Weight: 77.09 kg

DRUGS (4)
  1. ADVIL [Suspect]
     Indication: BACK PAIN
     Dosage: 400 MG (TWO CAPSULES OF 200 MG), ONCE DAILY
     Route: 048
     Dates: start: 20130303, end: 20130306
  2. ADVIL [Suspect]
     Indication: PAIN IN EXTREMITY
     Dosage: UNK
  3. LEVOTHYROXINE SODIUM [Concomitant]
     Indication: THYROID DISORDER
     Dosage: 0.075 MG, ONCE DAILY
  4. SIMVASTATIN [Concomitant]
     Dosage: UNK

REACTIONS (3)
  - Fatigue [Recovered/Resolved]
  - Eyelid function disorder [Recovered/Resolved]
  - Insomnia [Recovered/Resolved]
